FAERS Safety Report 6531620-6 (Version None)
Quarter: 2010Q1

REPORT INFORMATION
  Report Type: 
  Country: None (occurrence: None)
  Receive Date: 20100108
  Receipt Date: 20091228
  Transmission Date: 20100710
  Serious: Yes (Death)
  Sender: FDA-Public Use
  Company Number: JP-PFIZER INC-2009173075

PATIENT
  Age: 56 Year
  Sex: Female
  Weight: 53.1 kg

DRUGS (3)
  1. SUNITINIB MALATE [Suspect]
     Indication: RENAL CELL CARCINOMA
     Dosage: 37.5 MG, 1X/DAY
     Route: 048
     Dates: start: 20081023, end: 20090604
  2. LENDORMIN [Concomitant]
     Dosage: UNK
     Route: 048
     Dates: end: 20090325
  3. INDOMETHACIN [Concomitant]
     Route: 054
     Dates: start: 20081104, end: 20081104

REACTIONS (1)
  - CEREBRAL HAEMORRHAGE [None]
